FAERS Safety Report 5121035-X (Version None)
Quarter: 2006Q4

REPORT INFORMATION
  Report Type: 
  Country: None (occurrence: None)
  Receive Date: 20061002
  Receipt Date: 20060911
  Transmission Date: 20070319
  Serious: Yes (Other)
  Sender: FDA-Public Use
  Company Number: NL200607005012

PATIENT
  Age: 63 Year
  Sex: Female
  Weight: 86 kg

DRUGS (5)
  1. SOMATROPIN          (SOMATROPIN) [Suspect]
     Indication: GROWTH HORMONE DEFICIENCY
     Dosage: 0.2 MG, SUBCUTANEOUS
     Route: 058
     Dates: start: 20041104, end: 20060726
  2. LEVOTHYROXINE SODIUM [Concomitant]
  3. HYDROCORTISONE [Concomitant]
  4. PAROXETINE HCL [Concomitant]
  5. NEXIUM [Concomitant]

REACTIONS (1)
  - PITUITARY TUMOUR RECURRENT [None]
